FAERS Safety Report 6087995-8 (Version None)
Quarter: 2009Q1

REPORT INFORMATION
  Report Type: 
  Country: None (occurrence: None)
  Receive Date: 20090219
  Receipt Date: 20090215
  Transmission Date: 20090719
  Serious: Yes (Hospitalization)
  Sender: FDA-Public Use
  Company Number: 2008SP025353

PATIENT
  Age: 46 Year
  Sex: Female

DRUGS (2)
  1. PEG-INTRON [Suspect]
     Indication: HEPATITIS C
     Dosage: SC
     Route: 058
     Dates: start: 20081114, end: 20081201
  2. RIBASPHERE [Suspect]
     Indication: HEPATITIS C
     Dates: start: 20081114, end: 20081201

REACTIONS (8)
  - ANAEMIA [None]
  - ASTHENIA [None]
  - DELIRIUM [None]
  - FALL [None]
  - HYPOTENSION [None]
  - NEUTROPENIA [None]
  - VOMITING [None]
  - WHITE BLOOD CELL COUNT DECREASED [None]
